FAERS Safety Report 15349171 (Version 1)
Quarter: 2018Q3

REPORT INFORMATION
  Report Type: Spontaneous
  Country: US (occurrence: US)
  Receive Date: 20180904
  Receipt Date: 20180904
  Transmission Date: 20181010
  Serious: No
  Sender: FDA-Public Use
  Company Number: US-AMNEAL PHARMACEUTICALS-2018AMN00206

PATIENT
  Sex: Male
  Weight: 68.03 kg

DRUGS (1)
  1. GABAPENTIN. [Suspect]
     Active Substance: GABAPENTIN
     Indication: CERVICAL RADICULOPATHY
     Dosage: 600 MG, 3X/DAY
     Route: 065
     Dates: start: 201601

REACTIONS (1)
  - Drug ineffective [Not Recovered/Not Resolved]
